FAERS Safety Report 4559935-1 (Version None)
Quarter: 2005Q1

REPORT INFORMATION
  Report Type: 
  Country: None (occurrence: None)
  Receive Date: 20050124
  Receipt Date: 20050110
  Transmission Date: 20050727
  Serious: Yes (Other)
  Sender: FDA-Public Use
  Company Number: 2005012260

PATIENT
  Sex: Female
  Weight: 3.44 kg

DRUGS (1)
  1. MYLANTA PLUS (ALUMINIUM HYDROXIDE, MAGNESIUM HYDROXIDE, SIMETHICONE) [Suspect]
     Indication: DRUG EXPOSURE DURING PREGNANCY
     Dosage: 1-2 TSP DAILY, PLACENTAL
     Route: 064
     Dates: start: 20040801, end: 20040101

REACTIONS (2)
  - CONVULSION NEONATAL [None]
  - DRUG EXPOSURE DURING PREGNANCY [None]
